FAERS Safety Report 9757513 (Version 1)
Quarter: 2013Q4

REPORT INFORMATION
  Report Type: Spontaneous
  Country: US (occurrence: US)
  Receive Date: 20131216
  Receipt Date: 20131216
  Transmission Date: 20140711
  Serious: No
  Sender: FDA-Public Use
  Company Number: US-009507513-1312USA004190

PATIENT
  Sex: Female

DRUGS (7)
  1. VICTRELIS [Suspect]
     Indication: HEPATITIS C
     Dosage: 800 MG, Q8H
     Route: 048
     Dates: start: 201307
  2. PEGASYS [Suspect]
  3. RIBASPHERE [Suspect]
  4. OMEPRAZOLE [Concomitant]
  5. DETROL [Concomitant]
  6. ASCORBIC ACID [Concomitant]
  7. VITAMIN D (UNSPECIFIED) [Concomitant]

REACTIONS (3)
  - Feeling abnormal [Unknown]
  - Blood pressure decreased [Unknown]
  - Diarrhoea [Unknown]
